FAERS Safety Report 12906761 (Version 1)
Quarter: 2016Q4

REPORT INFORMATION
  Report Type: Spontaneous
  Country: PR (occurrence: PR)
  Receive Date: 20161103
  Receipt Date: 20161103
  Transmission Date: 20170207
  Serious: Yes (Other)
  Sender: FDA-Public Use
  Company Number: PR-PFIZER INC-2016506302

PATIENT
  Age: 46 Year
  Sex: Female
  Weight: 74.39 kg

DRUGS (7)
  1. CLONAZEPAM. [Concomitant]
     Active Substance: CLONAZEPAM
     Indication: ANXIETY
     Dosage: 3 MG, DAILY (1 MG IN THE MORNING AND 2 MG AT NIGHT)
  2. CARISOPRODOL. [Concomitant]
     Active Substance: CARISOPRODOL
     Indication: MUSCLE RELAXANT THERAPY
     Dosage: 325 MG, 2X/DAY
  3. LYRICA [Suspect]
     Active Substance: PREGABALIN
     Dosage: 200 MG, 2X/DAY
  4. ZOLOFT [Concomitant]
     Active Substance: SERTRALINE HYDROCHLORIDE
     Indication: DEPRESSION
     Dosage: 100 MG, DAILY (100 MG IN THE MORNING )
  5. XANAX [Concomitant]
     Active Substance: ALPRAZOLAM
     Indication: RELAXATION THERAPY
     Dosage: TAKES THIS AT NIGHT
  6. PERCOCET [Concomitant]
     Active Substance: ACETAMINOPHEN\OXYCODONE HYDROCHLORIDE
     Indication: PAIN
     Dosage: 5 MG, AS NEEDED (5MG EVERY 4 HOURS AS NEEDED)
  7. LYRICA [Suspect]
     Active Substance: PREGABALIN
     Indication: NEUROPATHY PERIPHERAL
     Dosage: 50 MG, 2X/DAY(50MG CAPSULE TWICE A DAY, EVERY 12HOURS)
     Dates: start: 2006

REACTIONS (11)
  - Pain in extremity [Not Recovered/Not Resolved]
  - Intentional product misuse [Not Recovered/Not Resolved]
  - Arthralgia [Not Recovered/Not Resolved]
  - Back pain [Not Recovered/Not Resolved]
  - Road traffic accident [Unknown]
  - Pain [Unknown]
  - Hypoaesthesia [Not Recovered/Not Resolved]
  - Ankle fracture [Recovered/Resolved with Sequelae]
  - Inflammation [Not Recovered/Not Resolved]
  - Weight increased [Not Recovered/Not Resolved]
  - Neck pain [Not Recovered/Not Resolved]

NARRATIVE: CASE EVENT DATE: 2007
